FAERS Safety Report 4599874-3 (Version None)
Quarter: 2005Q1

REPORT INFORMATION
  Report Type: 
  Country: None (occurrence: None)
  Receive Date: 20050303
  Receipt Date: 20050208
  Transmission Date: 20050727
  Serious: Yes (Other)
  Sender: FDA-Public Use
  Company Number: EWC050242676

PATIENT
  Age: 65 Year
  Sex: Female

DRUGS (2)
  1. YENTREVE (DULOXETINE HYDROCHLORIDE) [Suspect]
     Indication: STRESS INCONTINENCE
     Dosage: 40 MG/2 DAY
     Dates: start: 20050131, end: 20050203
  2. YENTREVE (DULOXETINE HYDROCHLORIDE) [Suspect]
     Indication: URINARY INCONTINENCE
     Dosage: 40 MG/2 DAY
     Dates: start: 20050131, end: 20050203

REACTIONS (1)
  - HYPERGLYCAEMIA [None]
